FAERS Safety Report 23663299 (Version 1)
Quarter: 2024Q1

REPORT INFORMATION
  Report Type: Report from Study
  Country: CN (occurrence: CN)
  Receive Date: 20240322
  Receipt Date: 20240322
  Transmission Date: 20240409
  Serious: Yes (Other)
  Sender: FDA-Public Use
  Company Number: CN-Accord-414694

PATIENT

DRUGS (3)
  1. CAPECITABINE [Suspect]
     Active Substance: CAPECITABINE
     Indication: Colorectal cancer
     Dosage: 1.5 G ORALLY TWICE DAILY ON DAYS 1 - 14, TOTAL 6 CYCLES
     Route: 048
  2. OXALIPLATIN [Suspect]
     Active Substance: OXALIPLATIN
     Indication: Colorectal cancer
     Dosage: 190 MG ON DAY 1, TOTAL 6 CYCLES
  3. GRANULOCYTE COLONY STIMULATING FACT [Concomitant]

REACTIONS (1)
  - Acute myeloid leukaemia [Unknown]
